FAERS Safety Report 22157456 (Version 1)
Quarter: 2023Q1

REPORT INFORMATION
  Report Type: Spontaneous
  Country: US (occurrence: US)
  Receive Date: 20230330
  Receipt Date: 20230330
  Transmission Date: 20230418
  Serious: No
  Sender: FDA-Public Use
  Company Number: US-INCYTE CORPORATION-2023IN002990

PATIENT

DRUGS (2)
  1. JAKAFI [Suspect]
     Active Substance: RUXOLITINIB
     Indication: Myeloproliferative neoplasm
     Dosage: 10 MILLIGRAM, BID (MONDAY/THURSDAY)
     Route: 048
     Dates: start: 20200417
  2. JAKAFI [Suspect]
     Active Substance: RUXOLITINIB
     Dosage: 10 MILLIGRAM, QD, ALL OTHER DAYS OF THE WEEK
     Route: 048

REACTIONS (2)
  - Ingrowing nail [Unknown]
  - Off label use [Unknown]

NARRATIVE: CASE EVENT DATE: 20200417
